FAERS Safety Report 20358332 (Version 9)
Quarter: 2024Q3

REPORT INFORMATION
  Report Type: Spontaneous
  Country: US (occurrence: US)
  Receive Date: 20220120
  Receipt Date: 20240919
  Transmission Date: 20241017
  Serious: Yes (Hospitalization, Other)
  Sender: PFIZER
  Company Number: US-PFIZER INC-2020013145

PATIENT
  Age: 63 Year
  Sex: Female
  Weight: 69.841 kg

DRUGS (2)
  1. XELJANZ [Suspect]
     Active Substance: TOFACITINIB CITRATE
     Indication: Rheumatoid arthritis
     Dosage: 5 MG PO (PER ORAL) BID (60 TABLETS)
     Route: 048
     Dates: start: 2012
  2. XELJANZ [Suspect]
     Active Substance: TOFACITINIB CITRATE
     Dosage: 5 MG PO (PER ORAL) QD (30 TABLETS, 60 TABLETS)
     Route: 048

REACTIONS (6)
  - Spinal disorder [Not Recovered/Not Resolved]
  - Neck surgery [Recovering/Resolving]
  - Spinal operation [Unknown]
  - Feeling abnormal [Unknown]
  - Off label use [Unknown]
  - Product prescribing error [Unknown]

NARRATIVE: CASE EVENT DATE: 20191219
